FAERS Safety Report 14127520 (Version 1)
Quarter: 2017Q4

REPORT INFORMATION
  Report Type: Report from Study
  Country: US (occurrence: US)
  Receive Date: 20171026
  Receipt Date: 20171026
  Transmission Date: 20180321
  Serious: Yes (Death)
  Sender: FDA-Public Use
  Company Number: US-ROCHE-2013135

PATIENT
  Age: 43 Year
  Sex: Male
  Weight: 85.9 kg

DRUGS (60)
  1. VENETOCLAX. [Suspect]
     Active Substance: VENETOCLAX
     Dosage: CYCLE DAY 26 CYCLE 2
     Route: 048
     Dates: start: 20170809
  2. CARBOPLATIN. [Suspect]
     Active Substance: CARBOPLATIN
     Indication: DIFFUSE LARGE B-CELL LYMPHOMA
     Dosage: CYCLE 1
     Route: 042
     Dates: start: 20170719
  3. IFOSFAMIDE. [Suspect]
     Active Substance: IFOSFAMIDE
     Indication: DIFFUSE LARGE B-CELL LYMPHOMA
     Dosage: CYCLE 1
     Route: 042
     Dates: start: 20170719
  4. MESNA. [Suspect]
     Active Substance: MESNA
     Indication: PRODUCT USED FOR UNKNOWN INDICATION
     Dosage: CYCLE 1
     Route: 042
     Dates: start: 20170719
  5. MESNA. [Suspect]
     Active Substance: MESNA
     Dosage: CYCLE 3 OVER 24HRS, DAY 2 TO 3?DATE OF MOST RECENT DOSE OF IFOSFAMIDE: 21/SEP/2017
     Route: 042
     Dates: start: 20170920, end: 20170921
  6. OXYCODONE [Concomitant]
     Active Substance: OXYCODONE
     Indication: PAIN IN EXTREMITY
     Dosage: AS NEEDED
     Route: 048
     Dates: start: 20170923
  7. BENZONATATE. [Concomitant]
     Active Substance: BENZONATATE
     Indication: COUGH
     Dosage: AS NEEDED
     Route: 048
  8. EPINEPHRINE. [Concomitant]
     Active Substance: EPINEPHRINE
     Dosage: 4 MG/D5W 250 ML
     Route: 042
  9. VENETOCLAX. [Suspect]
     Active Substance: VENETOCLAX
     Dosage: CYCLE 3, DAILY FOR 10 DAYS?MOST RECENT DOSE OF VENETOCLAX: 28/SEP/2017
     Route: 048
     Dates: start: 20170919, end: 20170928
  10. ETOPOSIDE. [Suspect]
     Active Substance: ETOPOSIDE
     Dosage: CYCLE 2, DAYS 1-3?MOST DOSE DOSE RECEIVED ON: 11/AUG/2017
     Route: 042
     Dates: start: 20170809
  11. IFOSFAMIDE. [Suspect]
     Active Substance: IFOSFAMIDE
     Dosage: CYCLE 3 OVER 24 HRS, DAY 2 TO DAY 3?MOST DOSE DOSE RECEIVED ON: 21/SEP/2017
     Route: 042
     Dates: start: 20170920, end: 20170921
  12. MESNA. [Suspect]
     Active Substance: MESNA
     Dosage: CYCLE 2 OVER 24HRS, DAY 2 TO 3
     Route: 042
     Dates: start: 20170810
  13. MESNA. [Suspect]
     Active Substance: MESNA
     Dosage: 4 HRS AFTER COMPLETION OF IFOSFAMIDE ON DAY 3
     Route: 042
     Dates: start: 20170921
  14. OXYCODONE [Concomitant]
     Active Substance: OXYCODONE
     Indication: BACK PAIN
  15. PHENYLEPHRINE [Concomitant]
     Active Substance: PHENYLEPHRINE\PHENYLEPHRINE HYDROCHLORIDE
     Indication: HAEMORRHOIDS
     Route: 065
  16. VASOPRESSIN. [Concomitant]
     Active Substance: VASOPRESSIN
     Dosage: 40 UNITS
     Route: 042
  17. URSODIOL. [Concomitant]
     Active Substance: URSODIOL
     Route: 048
  18. SPIRIVA [Concomitant]
     Active Substance: TIOTROPIUM BROMIDE MONOHYDRATE
  19. ESOMEPRAZOLE [Concomitant]
     Active Substance: ESOMEPRAZOLE
     Route: 065
  20. BISACODYL. [Concomitant]
     Active Substance: BISACODYL
     Route: 048
  21. CARBOPLATIN. [Suspect]
     Active Substance: CARBOPLATIN
     Dosage: CYCLE 2, RECEIVED ON DAY 3?DATE OF MOST RECENT DOSE OF CARBOPLATIN : 11/AUG/2017
     Route: 042
     Dates: start: 20170811
  22. ETOPOSIDE. [Suspect]
     Active Substance: ETOPOSIDE
     Indication: DIFFUSE LARGE B-CELL LYMPHOMA
     Dosage: CYCLE 1
     Route: 042
     Dates: start: 20170719
  23. MAGNESIUM OXIDE. [Concomitant]
     Active Substance: MAGNESIUM OXIDE
     Route: 065
     Dates: start: 20170929
  24. NYSTATIN. [Concomitant]
     Active Substance: NYSTATIN
     Dosage: 100000 UNITS/ML
     Route: 048
     Dates: start: 20170926
  25. AMIODARONE [Concomitant]
     Active Substance: AMIODARONE
     Dosage: 360 MG/D5W 200 ML
     Route: 042
  26. VENETOCLAX. [Suspect]
     Active Substance: VENETOCLAX
     Indication: DIFFUSE LARGE B-CELL LYMPHOMA
     Dosage: CYCLE 1
     Route: 048
     Dates: start: 20170719
  27. CARBOPLATIN. [Suspect]
     Active Substance: CARBOPLATIN
     Dosage: CYCLE 3, RECEIVED ON DAY 2?DATE OF MOST RECENT DOSE OF CARBOPLATIN : 20/SEP/2017
     Route: 042
     Dates: start: 20170920, end: 20170920
  28. FENTANYL. [Concomitant]
     Active Substance: FENTANYL
     Route: 042
  29. ACETAMINOPHEN. [Concomitant]
     Active Substance: ACETAMINOPHEN
     Route: 048
  30. MAGNESIUM HYDROXIDE. [Concomitant]
     Active Substance: MAGNESIUM HYDROXIDE
     Route: 048
  31. VANCOMYCIN [Concomitant]
     Active Substance: VANCOMYCIN
  32. TESSALON [Concomitant]
     Active Substance: BENZONATATE
  33. LACTULOSE. [Concomitant]
     Active Substance: LACTULOSE
     Route: 048
  34. DEXTROSE. [Concomitant]
     Active Substance: DEXTROSE
     Route: 040
  35. LORATADINE. [Concomitant]
     Active Substance: LORATADINE
     Route: 048
     Dates: start: 20170902
  36. NACL [Concomitant]
     Active Substance: SODIUM CHLORIDE
     Route: 042
  37. MAGNESIUM HYDROXIDE. [Concomitant]
     Active Substance: MAGNESIUM HYDROXIDE
     Dosage: AL HYDROX
     Route: 048
  38. ONDANSETRON [Concomitant]
     Active Substance: ONDANSETRON
     Route: 042
  39. FILGRASTIM [Concomitant]
     Active Substance: FILGRASTIM
     Route: 058
  40. PROCLORPERAZINA [Concomitant]
     Indication: NAUSEA
     Dosage: AS NEEDED
     Route: 048
     Dates: start: 20170719
  41. RITUXIMAB. [Suspect]
     Active Substance: RITUXIMAB
     Indication: DIFFUSE LARGE B-CELL LYMPHOMA
     Dosage: CYCLE 1
     Route: 042
     Dates: start: 20170719
  42. RITUXIMAB. [Suspect]
     Active Substance: RITUXIMAB
     Dosage: CYCLE 3
     Route: 042
     Dates: start: 20170919, end: 20170919
  43. IFOSFAMIDE. [Suspect]
     Active Substance: IFOSFAMIDE
     Dosage: CYCLE 2 OVER 24 HRS, DAY 2 TO DAY 3
     Route: 042
     Dates: start: 20170810
  44. DEPAKOTE [Concomitant]
     Active Substance: DIVALPROEX SODIUM
     Indication: BIPOLAR DISORDER
     Route: 065
     Dates: start: 20170829
  45. LOVENOX [Concomitant]
     Active Substance: ENOXAPARIN SODIUM
     Route: 065
  46. GLUCAGON. [Concomitant]
     Active Substance: GLUCAGON
     Route: 030
  47. ETOPOSIDE. [Suspect]
     Active Substance: ETOPOSIDE
     Dosage: CYCLE 23 DAYS 1-3?MOST DOSE DOSE RECEIVED ON: 21/SEP/2017
     Route: 042
     Dates: start: 20170919, end: 20170921
  48. LOPERAMIDE [Concomitant]
     Active Substance: LOPERAMIDE
     Indication: DIARRHOEA
     Dosage: AS NEEDED
     Route: 048
  49. CIPRO [Concomitant]
     Active Substance: CIPROFLOXACIN HYDROCHLORIDE
     Route: 048
  50. NOREPINEPHRINE. [Concomitant]
     Active Substance: NOREPINEPHRINE
     Dosage: 8 MG/D5W 250 ML
     Route: 042
  51. ONDANSETRON [Concomitant]
     Active Substance: ONDANSETRON
     Route: 048
  52. RITUXIMAB. [Suspect]
     Active Substance: RITUXIMAB
     Dosage: CYCLE 2
     Route: 042
     Dates: start: 20170809
  53. MESNA. [Suspect]
     Active Substance: MESNA
     Dosage: 4 HRS AFTER COMPLETION OF IFOSFAMIDE ON DAY 3
     Route: 042
  54. LOVENOX [Concomitant]
     Active Substance: ENOXAPARIN SODIUM
     Indication: VENA CAVA THROMBOSIS
     Route: 065
     Dates: start: 201607
  55. K+ TABS [Concomitant]
     Dosage: EXTENDED RELEASE?2 TABLET
     Route: 065
     Dates: start: 20170926
  56. ALLOPURINOL. [Concomitant]
     Active Substance: ALLOPURINOL
     Route: 048
  57. MIDAZOLAM [Concomitant]
     Active Substance: MIDAZOLAM HYDROCHLORIDE
     Route: 042
  58. BENZONATATE. [Concomitant]
     Active Substance: BENZONATATE
     Route: 048
  59. DIPHENHYDRAMINE. [Concomitant]
     Active Substance: DIPHENHYDRAMINE
     Route: 048
  60. DIPHENHYDRAMINE. [Concomitant]
     Active Substance: DIPHENHYDRAMINE
     Route: 048

REACTIONS (1)
  - Respiratory failure [Fatal]

NARRATIVE: CASE EVENT DATE: 20171011
